FAERS Safety Report 20091399 (Version 1)
Quarter: 2021Q4

REPORT INFORMATION
  Report Type: Spontaneous
  Country: RU (occurrence: RU)
  Receive Date: 20211119
  Receipt Date: 20211119
  Transmission Date: 20220304
  Serious: Yes (Hospitalization)
  Sender: FDA-Public Use
  Company Number: RU-ABBVIE-21K-251-4168037-00

PATIENT
  Sex: Female

DRUGS (2)
  1. VALPROIC ACID [Suspect]
     Active Substance: VALPROIC ACID
     Indication: Suicide attempt
     Route: 048
     Dates: start: 20200304, end: 20200304
  2. IMOVANE [Suspect]
     Active Substance: ZOPICLONE
     Indication: Suicide attempt
     Route: 048
     Dates: start: 20200304, end: 20200304

REACTIONS (2)
  - Vertigo [Unknown]
  - Intentional overdose [Unknown]

NARRATIVE: CASE EVENT DATE: 20200304
